FAERS Safety Report 16284136 (Version 2)
Quarter: 2019Q2

REPORT INFORMATION
  Report Type: Spontaneous
  Country: CN (occurrence: CN)
  Receive Date: 20190507
  Receipt Date: 20190617
  Transmission Date: 20190711
  Serious: Yes (Other)
  Sender: FDA-Public Use
  Company Number: PHHY2019CN104286

PATIENT

DRUGS (2)
  1. TOBRADEX [Suspect]
     Active Substance: DEXAMETHASONE\TOBRAMYCIN
     Indication: PRODUCT USED FOR UNKNOWN INDICATION
     Route: 065
  2. EMADINE [Suspect]
     Active Substance: EMEDASTINE DIFUMARATE
     Indication: PRODUCT USED FOR UNKNOWN INDICATION
     Dosage: UNK
     Route: 065
     Dates: start: 20190422

REACTIONS (7)
  - Ocular hyperaemia [Unknown]
  - Eye disorder [Unknown]
  - Vitreous haze [Unknown]
  - Eye movement disorder [Unknown]
  - Ocular discomfort [Unknown]
  - Product label on wrong product [Unknown]
  - Eye swelling [Unknown]

NARRATIVE: CASE EVENT DATE: 201904
